FAERS Safety Report 7950259-9 (Version None)
Quarter: 2011Q4

REPORT INFORMATION
  Report Type: 
  Country: None (occurrence: None)
  Receive Date: 20111130
  Receipt Date: 20111118
  Transmission Date: 20120403
  Serious: Yes (Hospitalization)
  Sender: FDA-Public Use
  Company Number: US-BAYER-2011-031187

PATIENT
  Age: 25 Year
  Sex: Female
  Weight: 61.224 kg

DRUGS (6)
  1. YAZ [Suspect]
     Indication: PREMENSTRUAL SYNDROME
     Dosage: UNK
     Dates: start: 20070701, end: 20080301
  2. CLARINEX [Concomitant]
     Dosage: UNK
     Dates: start: 20040101, end: 20110101
  3. YAZ [Suspect]
  4. FLOVENT [Concomitant]
     Dosage: UNK
     Dates: start: 20000101, end: 20080101
  5. IBUPROFEN [Concomitant]
     Dosage: UNK
     Dates: start: 20010101
  6. ADVAIR DISKUS 100/50 [Concomitant]
     Dosage: UNK
     Dates: start: 20000101, end: 20080101

REACTIONS (5)
  - INJURY [None]
  - PAIN [None]
  - OEDEMA PERIPHERAL [None]
  - DEEP VEIN THROMBOSIS [None]
  - FEAR [None]
